FAERS Safety Report 18330922 (Version 1)
Quarter: 2020Q3

REPORT INFORMATION
  Report Type: Spontaneous
  Country: US (occurrence: US)
  Receive Date: 20200930
  Receipt Date: 20200930
  Transmission Date: 20201103
  Serious: Yes (Hospitalization, Other)
  Sender: FDA-Public Use
  Company Number: US-JNJFOC-20200935563

PATIENT
  Age: 57 Year
  Sex: Female

DRUGS (1)
  1. DURAGESIC [Suspect]
     Active Substance: FENTANYL
     Indication: PRODUCT USED FOR UNKNOWN INDICATION
     Route: 065

REACTIONS (6)
  - Eating disorder [Unknown]
  - Overdose [Unknown]
  - Suicide attempt [Unknown]
  - Depression [Unknown]
  - Hospitalisation [Unknown]
  - Vision blurred [Unknown]
